FAERS Safety Report 8046163-0 (Version None)
Quarter: 2012Q1

REPORT INFORMATION
  Report Type: 
  Country: None (occurrence: None)
  Receive Date: 20120112
  Receipt Date: 20120112
  Transmission Date: 20120608
  Serious: Yes (Other)
  Sender: FDA-Public Use
  Company Number: None

PATIENT
  Age: 71 Year
  Sex: Female

DRUGS (9)
  1. POTASSIUM CHLORIDE [Concomitant]
  2. AMPYRA [Suspect]
     Indication: MULTIPLE SCLEROSIS
     Dosage: 10 MG Q12H ORALLY
     Route: 048
     Dates: start: 20111201, end: 20120101
  3. LISINOPRIL [Concomitant]
  4. CYANOCOBALAMIN [Concomitant]
  5. ERGOCALCIFEROL [Concomitant]
  6. FUROSEMIDE [Concomitant]
  7. AMLODIPINE [Concomitant]
  8. MECLIZINE [Concomitant]
  9. SIMVASTATIN [Concomitant]

REACTIONS (1)
  - TREMOR [None]
